FAERS Safety Report 25340600 (Version 2)
Quarter: 2025Q2

REPORT INFORMATION
  Report Type: Spontaneous
  Country: US (occurrence: US)
  Receive Date: 20250521
  Receipt Date: 20250522
  Transmission Date: 20250717
  Serious: No
  Sender: VIIV
  Company Number: US-VIIV HEALTHCARE-US2025AMR059641

PATIENT
  Age: 40 Year
  Sex: Female

DRUGS (3)
  1. CABENUVA [Suspect]
     Active Substance: CABOTEGRAVIR\RILPIVIRINE
     Indication: HIV infection
     Dosage: UNK, Q2M
     Route: 030
  2. CABENUVA [Suspect]
     Active Substance: CABOTEGRAVIR\RILPIVIRINE
  3. CABENUVA [Suspect]
     Active Substance: CABOTEGRAVIR\RILPIVIRINE

REACTIONS (8)
  - Injection site pain [Unknown]
  - Injection site nodule [Unknown]
  - Injection site discharge [Unknown]
  - Injection site discolouration [Unknown]
  - Injection site induration [Unknown]
  - Injection site injury [Unknown]
  - Eschar [Unknown]
  - Injection site scab [Unknown]
